FAERS Safety Report 9768753 (Version 2)
Quarter: 2014Q2

REPORT INFORMATION
  Report Type: Spontaneous
  Country: US (occurrence: US)
  Receive Date: 20131218
  Receipt Date: 20140417
  Transmission Date: 20141212
  Serious: No
  Sender: FDA-Public Use
  Company Number: US-BIOGENIDEC-2013BI120735

PATIENT
  Sex: Female

DRUGS (3)
  1. AVONEX [Suspect]
     Indication: MULTIPLE SCLEROSIS
     Route: 030
  2. AMPYRA [Concomitant]
     Dates: start: 2011
  3. AMPYRA [Concomitant]
     Dates: start: 2014, end: 2014

REACTIONS (3)
  - Gastrointestinal disorder [Unknown]
  - Malaise [Unknown]
  - Fatigue [Unknown]
